FAERS Safety Report 7988757 (Version 2)
Quarter: 2012Q4

REPORT INFORMATION
  Report Type: 
  Country: CA (occurrence: CA)
  Receive Date: 20110613
  Receipt Date: 20121104
  Transmission Date: 20130627
  Serious: Yes (Hospitalization, Other)
  Sender: FDA-Public Use
  Company Number: PHMT2006CA02033

PATIENT
  Sex: Female

DRUGS (18)
  1. ZOMETA [Suspect]
     Indication: BREAST CANCER
     Dosage: 4mg IV once a month
     Route: 042
     Dates: start: 20060731
  2. ACETAMINOPHEN [Concomitant]
  3. CODEINE [Concomitant]
  4. CODEINE CONTIN [Concomitant]
  5. DESIPRAMINE [Concomitant]
  6. DEXAMETHASONE [Concomitant]
  7. DILAUDID [Concomitant]
  8. DULCOLAX [Concomitant]
  9. GABAPENTIN [Concomitant]
  10. HYDROXYZINE [Concomitant]
  11. LACTULOSE [Concomitant]
  12. METOCLOPRAMIDE [Concomitant]
  13. MORPHINE [Concomitant]
  14. OXYCODONE [Concomitant]
  15. OXICONAZOLE [Concomitant]
  16. PANTOLOC [Concomitant]
  17. RANITIDINE ^RATIOPHARM^ [Concomitant]
  18. SENNOSIDES A+B [Concomitant]

REACTIONS (4)
  - Hip fracture [Unknown]
  - Poor venous access [Unknown]
  - Vessel puncture site bruise [Unknown]
  - Pain [Unknown]
